FAERS Safety Report 8760744 (Version 1)
Quarter: 2012Q4

REPORT INFORMATION
  Report Type: 
  Country: US (occurrence: US)
  Receive Date: 20120830
  Receipt Date: 20120830
  Transmission Date: 20130627
  Serious: No
  Sender: FDA-Public Use
  Company Number: US-TEVA-356156USA

PATIENT
  Sex: Male
  Weight: 90.8 kg

DRUGS (5)
  1. AZILECT [Suspect]
     Indication: PARKINSON^S DISEASE
     Dosage: 1 Milligram Daily;
     Route: 048
     Dates: start: 20120813
  2. AZILECT [Suspect]
     Dosage: .5 Milligram Daily;
     Route: 048
     Dates: start: 201207, end: 20120812
  3. ACTOS [Concomitant]
     Indication: DIABETES MELLITUS
     Route: 048
  4. GLIMEPIRIDE [Concomitant]
     Indication: DIABETES MELLITUS
     Route: 048
  5. PRAVASTATIN [Concomitant]
     Indication: HYPERCHOLESTEROLAEMIA
     Dosage: 40 Microgram Daily;
     Route: 048

REACTIONS (1)
  - Influenza [Not Recovered/Not Resolved]
